FAERS Safety Report 20010570 (Version 1)
Quarter: 2021Q4

REPORT INFORMATION
  Report Type: Spontaneous
  Country: DE (occurrence: DE)
  Receive Date: 20211029
  Receipt Date: 20211029
  Transmission Date: 20220304
  Serious: Yes (Hospitalization, Congenital Anomaly, Other)
  Sender: FDA-Public Use
  Company Number: DE-NOVARTISPH-NVSC2021DE238117

PATIENT
  Age: 1 Day
  Sex: Female
  Weight: 3.15 kg

DRUGS (4)
  1. VENLAFAXINE [Suspect]
     Active Substance: VENLAFAXINE HYDROCHLORIDE
     Indication: Foetal exposure during pregnancy
     Dosage: 300 MG, QD (DOSAGE REDUCED TO 150MG/D )
     Route: 064
     Dates: start: 20200303, end: 20201208
  2. PROMETHAZINE HYDROCHLORIDE [Suspect]
     Active Substance: PROMETHAZINE HYDROCHLORIDE
     Indication: Foetal exposure during pregnancy
     Dosage: 25 MG, QD
     Route: 064
     Dates: start: 20200303, end: 20201208
  3. RENNIE [Concomitant]
     Indication: Foetal exposure during pregnancy
     Dosage: UNK
     Route: 064
  4. RIOPAN [Concomitant]
     Indication: Foetal exposure during pregnancy
     Dosage: UNK
     Route: 064

REACTIONS (11)
  - Patent ductus arteriosus [Recovered/Resolved]
  - Pleural effusion [Recovered/Resolved]
  - Congenital tricuspid valve incompetence [Unknown]
  - Temperature regulation disorder [Recovered/Resolved]
  - Atrial septal defect [Unknown]
  - Neonatal respiratory failure [Recovered/Resolved]
  - Pulmonary haemorrhage neonatal [Recovered/Resolved]
  - Newborn persistent pulmonary hypertension [Recovered/Resolved]
  - Selective eating disorder [Recovered/Resolved]
  - Neonatal hypotension [Recovered/Resolved]
  - Foetal exposure during pregnancy [Unknown]

NARRATIVE: CASE EVENT DATE: 20201208
